FAERS Safety Report 16562568 (Version 1)
Quarter: 2019Q3

REPORT INFORMATION
  Report Type: Report from Study
  Country: BR (occurrence: BR)
  Receive Date: 20190711
  Receipt Date: 20190711
  Transmission Date: 20191004
  Serious: Yes (Death, Hospitalization, Other)
  Sender: FDA-Public Use
  Company Number: BR-BAYER-2019-067851

PATIENT
  Age: 52 Year
  Sex: Male

DRUGS (2)
  1. TRAMAL [Concomitant]
     Active Substance: TRAMADOL
     Indication: PAIN
     Dosage: UNK
     Dates: end: 20190619
  2. NEXAVAR [Suspect]
     Active Substance: SORAFENIB
     Indication: HEPATOCELLULAR CARCINOMA
     Dosage: 200 MG, BID
     Route: 048
     Dates: start: 20190330, end: 201905

REACTIONS (11)
  - Constipation [Not Recovered/Not Resolved]
  - Off label use [Not Recovered/Not Resolved]
  - Chronic hepatitis [Fatal]
  - Musculoskeletal chest pain [None]
  - Abdominal pain [None]
  - Yellow skin [None]
  - Procedural haemorrhage [None]
  - Acute myocardial infarction [Fatal]
  - Hepatocellular carcinoma [Fatal]
  - Cirrhosis alcoholic [Fatal]
  - Pain [None]

NARRATIVE: CASE EVENT DATE: 20190330
